FAERS Safety Report 7563079-4 (Version None)
Quarter: 2011Q2

REPORT INFORMATION
  Report Type: 
  Country: None (occurrence: None)
  Receive Date: 20110622
  Receipt Date: 20100805
  Transmission Date: 20111010
  Serious: Yes (Death, Hospitalization, Other)
  Sender: FDA-Public Use
  Company Number: GB-GENZYME-CLOF-1000925

PATIENT
  Sex: Male

DRUGS (9)
  1. ANTIBIOTICS [Concomitant]
     Indication: ANTIBIOTIC THERAPY
     Dosage: UNK
  2. ANTIFUNGALS [Suspect]
     Indication: ANTIFUNGAL TREATMENT
  3. EVOLTRA [Suspect]
     Indication: ACUTE MYELOID LEUKAEMIA
     Dosage: 36 MG, QDX5
     Route: 042
     Dates: start: 20100318, end: 20100322
  4. ALLOPURINOL [Concomitant]
     Dosage: UNK
  5. COD LIVER OIL [Concomitant]
     Dosage: UNK
  6. SODIUM CHLORIDE [Concomitant]
     Dosage: 100 ML, QD
     Route: 042
     Dates: start: 20100318, end: 20100322
  7. OXYGEN [Suspect]
     Indication: LIFE SUPPORT
     Route: 055
  8. BENDROFLUAZIDE [Concomitant]
  9. SIMVASTATIN [Concomitant]
     Dosage: UNK

REACTIONS (4)
  - ACUTE MYELOID LEUKAEMIA [None]
  - RESPIRATORY DISTRESS [None]
  - NEUTROPENIC SEPSIS [None]
  - PNEUMONIA [None]
